FAERS Safety Report 6758104-4 (Version None)
Quarter: 2010Q2

REPORT INFORMATION
  Report Type: 
  Country: None (occurrence: None)
  Receive Date: 20100602
  Receipt Date: 20100524
  Transmission Date: 20101027
  Serious: Yes (Other)
  Sender: FDA-Public Use
  Company Number: 2010SP029038

PATIENT
  Age: 50 Year
  Sex: Male

DRUGS (1)
  1. SAPHRIS [Suspect]
     Indication: BIPOLAR I DISORDER
     Dosage: 10 MG;BID

REACTIONS (3)
  - DRUG INEFFECTIVE [None]
  - HALLUCINATION, AUDITORY [None]
  - PANIC ATTACK [None]
